FAERS Safety Report 10006982 (Version 1)
Quarter: 2014Q1

REPORT INFORMATION
  Report Type: Spontaneous
  Country: US (occurrence: None)
  Receive Date: 20140311
  Receipt Date: 20140311
  Transmission Date: 20141002
  Serious: Yes (Hospitalization)
  Sender: FDA-Public Use
  Company Number: COM-002016

PATIENT
  Age: 58 Year
  Sex: Male
  Weight: 95.26 kg

DRUGS (8)
  1. PAROXETINE HYDROCHLORIDE [Suspect]
     Indication: SLEEP DISORDER
     Dosage: 2 TABLETS, ONCE, ORAL
     Route: 048
     Dates: start: 20140226, end: 20140226
  2. LAMOTRIGINE [Concomitant]
  3. TERZOSIN [Concomitant]
  4. ASPIRIN [Concomitant]
  5. AMLODIPINE [Concomitant]
  6. MELATONIN [Concomitant]
  7. BUPROPION XL [Concomitant]
  8. TESTOSTERONE INJECTION [Concomitant]

REACTIONS (8)
  - Nausea [None]
  - Tremor [None]
  - Dizziness [None]
  - Anxiety [None]
  - Headache [None]
  - Blood pressure systolic increased [None]
  - Product label on wrong product [None]
  - Wrong drug administered [None]
